FAERS Safety Report 10166076 (Version 3)
Quarter: 2014Q2

REPORT INFORMATION
  Report Type: Report from Study
  Country: JP (occurrence: JP)
  Receive Date: 20140512
  Receipt Date: 20140605
  Transmission Date: 20141212
  Serious: Yes (Death)
  Sender: FDA-Public Use
  Company Number: JP-PFIZER INC-2014127354

PATIENT
  Age: 62 Year
  Sex: Male

DRUGS (13)
  1. LYRICA [Suspect]
     Indication: NERVOUS SYSTEM DISORDER
     Dosage: 25 MG, 3X/DAY, AFTER MEALS
     Route: 048
     Dates: start: 20110616, end: 20110630
  2. LYRICA [Suspect]
     Dosage: 25 MG, 1X/DAY, BEFORE BEDTIME
     Route: 048
     Dates: start: 20110728, end: 20110803
  3. LYRICA [Suspect]
     Dosage: 50 MG, 1X/DAY, BEFORE BEDTIME
     Route: 048
     Dates: start: 20110804, end: 20110807
  4. LYRICA [Suspect]
     Dosage: 75 MG, 1X/DAY, BEFORE BEDTIME
     Route: 048
     Dates: start: 20110808, end: 20120224
  5. LOXOPROFEN [Concomitant]
     Indication: PAIN
     Dosage: 60 MG, 3X/DAY
     Route: 048
     Dates: start: 20110616
  6. TAKEPRON [Concomitant]
     Indication: PROPHYLAXIS
     Dosage: 15 MG, 1X/DAY
     Route: 048
     Dates: start: 20110616
  7. NOVAMIN [Concomitant]
     Indication: PROPHYLAXIS
     Dosage: 5 MG, 3X/DAY
     Route: 048
     Dates: start: 20110618, end: 20110717
  8. MAGMITT [Concomitant]
     Indication: PROPHYLAXIS
     Dosage: 330 MG, 3X/DAY
     Route: 048
     Dates: start: 20110618
  9. OXYCONTIN [Concomitant]
     Indication: PAIN
     Dosage: 40 MG, 2X/DAY
     Route: 048
     Dates: start: 20110704
  10. EURAX H [Concomitant]
     Indication: PRURITUS
     Dosage: UNK
     Route: 061
     Dates: start: 20110701
  11. RINDERON [Concomitant]
     Indication: PRURITUS
     Dosage: UNK
     Route: 061
     Dates: start: 20110701
  12. DERMOVATE [Concomitant]
     Dosage: UNK
     Route: 061
     Dates: start: 20110812
  13. FOLIAMIN [Concomitant]
     Indication: ANAEMIA
     Dosage: 5 MG, 4X/DAY
     Route: 048
     Dates: start: 20110829

REACTIONS (2)
  - Metastases to meninges [Fatal]
  - Azotaemia [Fatal]
